FAERS Safety Report 9324121 (Version 4)
Quarter: 2013Q3

REPORT INFORMATION
  Report Type: Report from Study
  Country: GB (occurrence: GB)
  Receive Date: 20130603
  Receipt Date: 20130703
  Transmission Date: 20140515
  Serious: Yes (Hospitalization)
  Sender: FDA-Public Use
  Company Number: GB-MPIJNJ-2013-03259

PATIENT
  Sex: 0

DRUGS (31)
  1. VELCADE [Suspect]
     Indication: DIFFUSE LARGE B-CELL LYMPHOMA
     Dosage: 1.9 MG, UNK
     Route: 065
     Dates: start: 20130509, end: 20130516
  2. RITUXIMAB [Suspect]
     Indication: DIFFUSE LARGE B-CELL LYMPHOMA
     Dosage: 600 MG, UNK
     Route: 065
     Dates: start: 20130418, end: 20130509
  3. CYCLOPHOSPHAMIDE [Suspect]
     Indication: DIFFUSE LARGE B-CELL LYMPHOMA
     Dosage: 1100 MG, UNK
     Route: 065
     Dates: start: 20130418, end: 20130509
  4. VINCRISTINE [Suspect]
     Indication: DIFFUSE LARGE B-CELL LYMPHOMA
     Dosage: 2 MG, UNK
     Route: 065
     Dates: start: 20130418, end: 20130509
  5. DOXORUBICIN [Suspect]
     Indication: DIFFUSE LARGE B-CELL LYMPHOMA
     Dosage: 74 MG, UNK
     Route: 065
     Dates: start: 20130418, end: 20130509
  6. PREDNISOLONE [Suspect]
     Indication: DIFFUSE LARGE B-CELL LYMPHOMA
     Dosage: 100 MG, UNK
     Route: 065
     Dates: start: 20130418, end: 20130513
  7. BISOPROLOL [Concomitant]
     Dosage: 1.25 MG, UNK
     Route: 048
     Dates: start: 20111017, end: 20130416
  8. FUROSEMIDE [Concomitant]
     Dosage: 40 MG, UNK
     Dates: start: 201204, end: 20130416
  9. METFORMIN [Concomitant]
     Dosage: 1 G, UNK
     Route: 048
     Dates: start: 200810
  10. LEVOTHYROXINE [Concomitant]
     Dosage: 100 MG, UNK
     Route: 048
     Dates: start: 200510
  11. SIMVASTATIN [Concomitant]
     Dosage: 40 MG, UNK
     Route: 048
     Dates: end: 20130501
  12. ASPIRIN [Concomitant]
     Dosage: 75 MG, UNK
     Route: 048
     Dates: start: 201204
  13. CLEXANE [Concomitant]
     Dosage: 80 MG, UNK
     Dates: start: 20120229
  14. CLEXANE [Concomitant]
     Dosage: UNK
     Dates: start: 20130507
  15. TRAMADOL [Concomitant]
     Dosage: 50 MG, UNK
     Route: 048
     Dates: start: 20130301
  16. PARACETAMOL [Concomitant]
     Dosage: 4 MG, UNK
     Dates: start: 20130227, end: 20130420
  17. NOVORAPID [Concomitant]
     Dosage: UNK
     Route: 058
     Dates: start: 20130424
  18. LEVEMIR [Concomitant]
     Dosage: UNK
     Route: 058
     Dates: start: 200810
  19. LEVEMIR [Concomitant]
     Dosage: UNK
     Dates: start: 20130424
  20. ACTRAPID                           /00030501/ [Concomitant]
     Dosage: UNK
     Dates: start: 20130416
  21. AUGMENTIN                          /00756801/ [Concomitant]
     Dosage: 3.6 MG, UNK
     Dates: start: 20130416, end: 20130418
  22. RAMIPRIL [Concomitant]
     Dosage: 5 MG, UNK
     Route: 048
     Dates: start: 201204, end: 20130416
  23. OMEPRAZOLE [Concomitant]
     Dosage: 40 MG, UNK
     Route: 048
     Dates: start: 20130418, end: 20130428
  24. CHLORHEXIDINE [Concomitant]
     Dosage: 40 MG, UNK
     Route: 048
     Dates: start: 20130419
  25. ALLOPURINOL [Concomitant]
     Dosage: 300 MG, UNK
     Route: 048
     Dates: start: 20130418, end: 20130428
  26. DOMPERIDONE [Concomitant]
     Dosage: 60 MG, UNK
     Route: 048
     Dates: start: 20130419, end: 20130428
  27. DOMPERIDONE [Concomitant]
     Dosage: 10 MG, PRN
     Route: 048
     Dates: start: 20130501
  28. CO-TRIMOXAZOLE [Concomitant]
     Dosage: 40 UNK, UNK
     Route: 048
     Dates: start: 20130419, end: 20130428
  29. NYSTATIN [Concomitant]
     Dosage: UNK
     Route: 048
     Dates: start: 20130428, end: 20130520
  30. DIFFLAM                            /00052302/ [Concomitant]
     Dosage: 40 ML, UNK
     Route: 048
     Dates: start: 20130428, end: 20130520
  31. LANSOPRAZOLE [Concomitant]
     Dosage: 15 MG, UNK
     Route: 048
     Dates: start: 20130429

REACTIONS (3)
  - Neutropenic sepsis [Recovered/Resolved]
  - Hyperglycaemia [Recovered/Resolved with Sequelae]
  - Febrile neutropenia [Recovered/Resolved]
